FAERS Safety Report 9017512 (Version 1)
Quarter: 2013Q1

REPORT INFORMATION
  Report Type: Spontaneous
  Country: US (occurrence: GB)
  Receive Date: 20130117
  Receipt Date: 20130117
  Transmission Date: 20140127
  Serious: Yes (Hospitalization, Disabling, Other)
  Sender: FDA-Public Use
  Company Number: US-WATSON-2012-19985

PATIENT
  Age: 76 Year
  Sex: Male

DRUGS (1)
  1. MORPHINE SULFATE (UNKNOWN) [Suspect]
     Indication: PRODUCT USED FOR UNKNOWN INDICATION
     Dosage: 3.59 MG, UNK
     Route: 037

REACTIONS (2)
  - Injection site granuloma [Recovered/Resolved with Sequelae]
  - Paraplegia [Recovered/Resolved with Sequelae]
